FAERS Safety Report 18799951 (Version 1)
Quarter: 2021Q1

REPORT INFORMATION
  Report Type: Spontaneous
  Country: US (occurrence: US)
  Receive Date: 20210127
  Receipt Date: 20210127
  Transmission Date: 20210419
  Serious: Yes (Life-Threatening, Hospitalization)
  Sender: FDA-Public Use
  Company Number: None

PATIENT
  Age: 63 Year
  Sex: Female
  Weight: 83.25 kg

DRUGS (1)
  1. DURAGESIC [Suspect]
     Active Substance: FENTANYL
     Indication: PROCEDURAL PAIN
     Dosage: ?          QUANTITY:1 PATCH(ES);OTHER FREQUENCY:CHANGE EVERY 3 DAY;?
     Route: 062
     Dates: start: 20201109, end: 20201111

REACTIONS (2)
  - Contraindicated product prescribed [None]
  - Product availability issue [None]

NARRATIVE: CASE EVENT DATE: 20201109
